FAERS Safety Report 6580740-9 (Version None)
Quarter: 2010Q1

REPORT INFORMATION
  Report Type: 
  Country: None (occurrence: None)
  Receive Date: 20100212
  Receipt Date: 20100204
  Transmission Date: 20100710
  Serious: Yes (Congenital Anomaly)
  Sender: FDA-Public Use
  Company Number: AU-GILEAD-2010-0026622

PATIENT
  Sex: Female
  Weight: 3.182 kg

DRUGS (3)
  1. EMTRIVA [Suspect]
     Route: 064
  2. VIREAD [Suspect]
     Route: 064
  3. ZIDOVUDINE [Concomitant]

REACTIONS (2)
  - CONGENITAL TRICUSPID VALVE ATRESIA [None]
  - HYPOPLASTIC RIGHT HEART SYNDROME [None]
